FAERS Safety Report 8078124-X (Version None)
Quarter: 2012Q1

REPORT INFORMATION
  Report Type: 
  Country: None (occurrence: None)
  Receive Date: 20120127
  Receipt Date: 20120117
  Transmission Date: 20120608
  Serious: Yes (Other)
  Sender: FDA-Public Use
  Company Number: US-BAXTER-2012BH001853

PATIENT
  Age: 19 Year
  Sex: Female

DRUGS (7)
  1. GAMMAGARD LIQUID [Suspect]
     Route: 042
     Dates: start: 20120118, end: 20120118
  2. GAMMAGARD LIQUID [Suspect]
     Route: 042
     Dates: start: 20120118, end: 20120118
  3. MOTRIN [Concomitant]
     Indication: PREMEDICATION
     Route: 048
     Dates: start: 20111221, end: 20120118
  4. GAMMAGARD LIQUID [Suspect]
     Indication: IMMUNODEFICIENCY COMMON VARIABLE
     Route: 042
     Dates: start: 20111001
  5. GAMMAGARD LIQUID [Suspect]
     Route: 042
     Dates: start: 20111221, end: 20111221
  6. GAMMAGARD LIQUID [Suspect]
     Indication: SELECTIVE IGG SUBCLASS DEFICIENCY
     Route: 042
     Dates: start: 20111001
  7. GAMMAGARD LIQUID [Suspect]
     Route: 042
     Dates: start: 20111221, end: 20111221

REACTIONS (6)
  - IRRITABILITY [None]
  - PSYCHIATRIC SYMPTOM [None]
  - FEELING ABNORMAL [None]
  - HYPERSOMNIA [None]
  - DEPRESSION [None]
  - ANGER [None]
